FAERS Safety Report 5406584-9 (Version None)
Quarter: 2007Q3

REPORT INFORMATION
  Report Type: 
  Country: None (occurrence: None)
  Receive Date: 20070806
  Receipt Date: 20070725
  Transmission Date: 20080115
  Serious: Yes (Hospitalization, Other)
  Sender: FDA-Public Use
  Company Number: JP-PFIZER INC-2007061911

PATIENT
  Age: 18 Year
  Sex: Male

DRUGS (3)
  1. ZITHROMAC [Suspect]
     Indication: PYREXIA
     Route: 048
  2. CALONAL [Concomitant]
  3. BRUFEN [Concomitant]
     Route: 048

REACTIONS (2)
  - ERYTHEMA [None]
  - HISTIOCYTOSIS HAEMATOPHAGIC [None]
